FAERS Safety Report 9548561 (Version 2)
Quarter: 2013Q3

REPORT INFORMATION
  Report Type: Spontaneous
  Country: US (occurrence: US)
  Receive Date: 20130924
  Receipt Date: 20130924
  Transmission Date: 20140515
  Serious: Yes (Death)
  Sender: FDA-Public Use
  Company Number: US-NAPPMUNDI-USA-2011-0066553

PATIENT
  Age: 67 Year
  Sex: Male
  Weight: 117.46 kg

DRUGS (5)
  1. MORPHINE SULFATE EXTENDED-RELEASE TABLETS (RHODES 74-862) [Suspect]
     Indication: ARTHRALGIA
     Dosage: 60 MG, SEE TEXT
     Dates: start: 201003
  2. MORPHINE SULFATE EXTENDED-RELEASE TABLETS (RHODES 74-862) [Suspect]
     Indication: ARTHRALGIA
  3. MORPHINE SULFATE EXTENDED-RELEASE TABLETS (RHODES 74-862) [Suspect]
     Indication: ARTHRALGIA
  4. MORPHINE [Concomitant]
     Indication: BREAKTHROUGH PAIN
     Dosage: 15 MG, TID
     Dates: start: 201003
  5. AMLODIPINE BESYLATE W/BENAZEPRIL [Concomitant]
     Indication: PRODUCT USED FOR UNKNOWN INDICATION

REACTIONS (4)
  - Cardiac arrest [Fatal]
  - Chest discomfort [Unknown]
  - Dyspnoea [Unknown]
  - Asthenia [Unknown]
